FAERS Safety Report 7941668-2 (Version None)
Quarter: 2011Q4

REPORT INFORMATION
  Report Type: 
  Country: None (occurrence: None)
  Receive Date: 20111128
  Receipt Date: 20111128
  Transmission Date: 20120403
  Serious: Yes (Other)
  Sender: FDA-Public Use
  Company Number: None

PATIENT
  Age: 55 Year
  Sex: Male
  Weight: 106.59 kg

DRUGS (2)
  1. KEFLEX [Suspect]
     Indication: URTICARIA
     Dosage: 1 CAPSULE
     Route: 048
     Dates: start: 20111116, end: 20111123
  2. KEFLEX [Suspect]
     Indication: RASH
     Dosage: 1 CAPSULE
     Route: 048
     Dates: start: 20111116, end: 20111123

REACTIONS (2)
  - ABDOMINAL PAIN [None]
  - HAEMATOCHEZIA [None]
